FAERS Safety Report 8486058 (Version 2)
Quarter: 2015Q2

REPORT INFORMATION
  Report Type: Spontaneous
  Country: US (occurrence: US)
  Receive Date: 20120401
  Receipt Date: 20150610
  Transmission Date: 20150821
  Serious: Yes (Death, Life-Threatening, Congenital Anomaly, Other)
  Sender: FDA-Public Use
  Company Number: US-ELI_LILLY_AND_COMPANY-US201203007999

PATIENT
  Age: 20 Day

DRUGS (4)
  1. PROZAC [Suspect]
     Active Substance: FLUOXETINE HYDROCHLORIDE
     Indication: OBSESSIVE-COMPULSIVE DISORDER
     Dosage: 60 MG, EACH MORNING
     Route: 064
  2. KLONOPIN [Concomitant]
     Active Substance: CLONAZEPAM
     Indication: OBSESSIVE-COMPULSIVE DISORDER
  3. NEXIUM [Concomitant]
     Active Substance: ESOMEPRAZOLE MAGNESIUM
  4. BUSPAR [Concomitant]
     Active Substance: BUSPIRONE HYDROCHLORIDE

REACTIONS (14)
  - Cardiogenic shock [Fatal]
  - Umbilical cord short [Unknown]
  - Aneurysm [Unknown]
  - Coarctation of the aorta [Unknown]
  - Patent ductus arteriosus [Unknown]
  - Atrial septal defect [Unknown]
  - Acute kidney injury [Unknown]
  - Renal tubular necrosis [Unknown]
  - Cardiac arrest [Unknown]
  - Aorta hypoplasia [Unknown]
  - Atrioventricular septal defect [Unknown]
  - Ventricular hypoplasia [Unknown]
  - Foetal exposure during pregnancy [Recovered/Resolved]
  - Ventricular septal defect [Unknown]

NARRATIVE: CASE EVENT DATE: 20050406
